FAERS Safety Report 5503689-9 (Version None)
Quarter: 2007Q4

REPORT INFORMATION
  Report Type: 
  Country: None (occurrence: None)
  Receive Date: 20071030
  Receipt Date: 20070904
  Transmission Date: 20080405
  Serious: Yes (Other)
  Sender: FDA-Public Use
  Company Number: US-SANOFI-SYNTHELABO-A03200705334

PATIENT
  Sex: Female
  Weight: 80.3 kg

DRUGS (7)
  1. LEUCOVORIN CALCIUM [Suspect]
     Indication: COLON CANCER
     Dosage: 500 MG/M2 EVERY WEEK
     Route: 042
     Dates: start: 20060207, end: 20060207
  2. ELOXATIN [Suspect]
     Indication: COLON CANCER
     Dosage: 85 MG/M2 EVERY 2 WEEKS
     Route: 042
     Dates: start: 20060207, end: 20060207
  3. LOMOTIL [Concomitant]
     Indication: DIARRHOEA
     Dosage: UNK
     Route: 065
     Dates: start: 20051108, end: 20060406
  4. COMPAZINE [Concomitant]
     Indication: NAUSEA
     Route: 048
     Dates: start: 20051101, end: 20060406
  5. IRON PILL [Concomitant]
     Indication: ANAEMIA
     Dosage: UNK
     Route: 065
     Dates: end: 20060406
  6. PROZAC [Concomitant]
     Indication: ANXIETY
     Route: 048
  7. FLUOROURACIL [Suspect]
     Indication: COLON CANCER
     Dosage: 500 MG/M2 EVERY WEEK
     Route: 042
     Dates: start: 20060207, end: 20060207

REACTIONS (2)
  - PANCYTOPENIA [None]
  - SPLENOMEGALY [None]
